FAERS Safety Report 24140700 (Version 1)
Quarter: 2024Q3

REPORT INFORMATION
  Report Type: Spontaneous
  Country: CA (occurrence: None)
  Receive Date: 20240726
  Receipt Date: 20240726
  Transmission Date: 20241017
  Serious: Yes (Other)
  Sender: ORION
  Company Number: CA-PFIZER INC-202400220915

PATIENT
  Age: 71 Year
  Sex: Male

DRUGS (6)
  1. METHOTREXATE [Suspect]
     Active Substance: METHOTREXATE
     Indication: Product used for unknown indication
     Dates: start: 20240229
  2. METHOTREXATE [Suspect]
     Active Substance: METHOTREXATE
  3. SULFATRIM [Concomitant]
     Active Substance: SULFAMETHOXAZOLE\TRIMETHOPRIM
  4. PREDNISONE [Concomitant]
     Active Substance: PREDNISONE
  5. PREDNISONE [Concomitant]
     Active Substance: PREDNISONE
     Dosage: WITH TAPER
  6. MYCOPHENOLIC ACID [Concomitant]
     Active Substance: MYCOPHENOLIC ACID

REACTIONS (7)
  - Choking [Unknown]
  - Blood creatine phosphokinase increased [Unknown]
  - Dysphagia [Unknown]
  - Productive cough [Unknown]
  - Aspiration [Unknown]
  - Muscular weakness [Unknown]
  - Muscle oedema [Unknown]

NARRATIVE: CASE EVENT DATE: 20230101
